FAERS Safety Report 6160339-9 (Version None)
Quarter: 2009Q2

REPORT INFORMATION
  Report Type: 
  Country: None (occurrence: None)
  Receive Date: 20090420
  Receipt Date: 20090415
  Transmission Date: 20091009
  Serious: Yes (Death)
  Sender: FDA-Public Use
  Company Number: US-CELGENEUS-163-21880-09031206

PATIENT
  Sex: Male

DRUGS (2)
  1. REVLIMID [Suspect]
     Route: 048
     Dates: start: 20090119, end: 20090309
  2. REVLIMID [Suspect]
     Indication: ACUTE MYELOID LEUKAEMIA

REACTIONS (1)
  - ACUTE MYELOID LEUKAEMIA [None]
